FAERS Safety Report 4587900-7 (Version None)
Quarter: 2005Q1

REPORT INFORMATION
  Report Type: 
  Country: None (occurrence: None)
  Receive Date: 20050219
  Receipt Date: 20050207
  Transmission Date: 20050727
  Serious: Yes (Other)
  Sender: FDA-Public Use
  Company Number: PHFR2005GB00833

PATIENT
  Age: 44 Year
  Sex: Female

DRUGS (6)
  1. ACETAMINOPHEN [Concomitant]
     Route: 048
  2. HYDROCORTISONE [Concomitant]
     Dosage: 10MG/DAY
     Route: 065
  3. FLUDROCORTISONE [Concomitant]
     Dosage: 0.1MG/DAY
     Route: 048
  4. METOCLOPRAMIDE [Concomitant]
     Dosage: 10MG/DAY
     Route: 048
  5. MST CONTINUS ^NAPP^ [Concomitant]
     Dosage: 30MG/DAY
  6. ZOMETA [Suspect]
     Route: 048

REACTIONS (1)
  - HERPETIC STOMATITIS [None]
